FAERS Safety Report 8185893-7 (Version None)
Quarter: 2012Q1

REPORT INFORMATION
  Report Type: 
  Country: None (occurrence: None)
  Receive Date: 20120305
  Receipt Date: 20120224
  Transmission Date: 20120608
  Serious: Yes (Death, Other)
  Sender: FDA-Public Use
  Company Number: JP-ROCHE-1044220

PATIENT
  Sex: Male

DRUGS (29)
  1. MYCOPHENOLATE MOFETIL (CELLCEPT) [Suspect]
     Route: 048
     Dates: start: 20050913, end: 20050926
  2. MYCOPHENOLATE MOFETIL (CELLCEPT) [Suspect]
     Route: 048
     Dates: start: 20051025, end: 20051120
  3. FUNGUARD [Concomitant]
     Indication: PROPHYLAXIS
     Route: 042
     Dates: start: 20050913, end: 20050926
  4. RABEPRAZOLE SODIUM [Concomitant]
     Indication: PROPHYLAXIS
     Route: 048
     Dates: start: 20051028, end: 20060813
  5. TACROLIMUS [Suspect]
     Indication: PROPHYLAXIS AGAINST TRANSPLANT REJECTION
     Dosage: 0-0.9MG/DAY
     Route: 048
     Dates: start: 20050912, end: 20050922
  6. FLUMARIN [Concomitant]
     Indication: PROPHYLAXIS
     Route: 042
     Dates: start: 20050913, end: 20050915
  7. GANCICLOVIR [Concomitant]
     Indication: PROPHYLAXIS
     Route: 042
     Dates: start: 20050913, end: 20050922
  8. MYCOPHENOLATE MOFETIL (CELLCEPT) [Suspect]
     Route: 048
     Dates: start: 20051122, end: 20051125
  9. LASIX [Concomitant]
     Indication: PROPHYLAXIS
     Route: 042
     Dates: start: 20050913, end: 20051001
  10. CLINDAMYCIN PHOSPHATE [Concomitant]
     Indication: PROPHYLAXIS
     Route: 042
     Dates: start: 20050913, end: 20050915
  11. COTRIM [Concomitant]
     Indication: PROPHYLAXIS
     Route: 048
     Dates: start: 20050913, end: 20051124
  12. MYCOPHENOLATE MOFETIL (CELLCEPT) [Suspect]
     Indication: PROPHYLAXIS AGAINST TRANSPLANT REJECTION
     Route: 048
     Dates: start: 20050912, end: 20050912
  13. MYCOPHENOLATE MOFETIL (CELLCEPT) [Suspect]
     Route: 048
     Dates: start: 20051024, end: 20051024
  14. MYCOPHENOLATE MOFETIL (CELLCEPT) [Suspect]
     Route: 048
     Dates: start: 20060302, end: 20060302
  15. URSO 250 [Concomitant]
     Indication: PROPHYLAXIS
     Route: 048
     Dates: start: 20050913, end: 20050922
  16. VALGANCICLOVIR [Concomitant]
     Indication: PROPHYLAXIS
     Route: 048
     Dates: start: 20051101, end: 20051119
  17. PEG-INTRON [Concomitant]
     Indication: PROPHYLAXIS
     Route: 030
     Dates: start: 20051110, end: 20060325
  18. MYCOPHENOLATE MOFETIL (CELLCEPT) [Suspect]
     Route: 048
     Dates: start: 20051121, end: 20051121
  19. MYCOPHENOLATE MOFETIL (CELLCEPT) [Suspect]
     Route: 048
     Dates: start: 20060303, end: 20060922
  20. BASILIXIMAB [Suspect]
     Route: 042
     Dates: start: 20050916, end: 20050916
  21. OMEPRAZOLE [Concomitant]
     Route: 048
     Dates: start: 20051002, end: 20051029
  22. FAMOTIDINE [Concomitant]
     Indication: PROPHYLAXIS
     Route: 048
     Dates: start: 20060214, end: 20060807
  23. MYCOPHENOLATE MOFETIL (CELLCEPT) [Suspect]
     Route: 048
     Dates: start: 20050927, end: 20050927
  24. NEORAL [Concomitant]
     Indication: PROPHYLAXIS AGAINST TRANSPLANT REJECTION
     Dosage: 50-300MG
     Route: 048
     Dates: start: 20050922, end: 20060922
  25. OMEPRAZOLE [Concomitant]
     Indication: PROPHYLAXIS
     Route: 042
     Dates: start: 20050913, end: 20050922
  26. REBETOL [Concomitant]
     Indication: PROPHYLAXIS
     Route: 048
     Dates: start: 20051110, end: 20060703
  27. MYCOPHENOLATE MOFETIL (CELLCEPT) [Suspect]
     Route: 048
     Dates: start: 20050928, end: 20051023
  28. BASILIXIMAB [Suspect]
     Indication: PROPHYLAXIS AGAINST TRANSPLANT REJECTION
     Route: 042
     Dates: start: 20050912, end: 20050912
  29. RISPERDAL [Concomitant]
     Indication: PROPHYLAXIS
     Dosage: 1-4T
     Route: 048
     Dates: start: 20060224, end: 20060807

REACTIONS (2)
  - NEUROLOGICAL SYMPTOM [None]
  - HEPATIC NEOPLASM MALIGNANT RECURRENT [None]
